FAERS Safety Report 7259497-4 (Version None)
Quarter: 2011Q1

REPORT INFORMATION
  Report Type: 
  Country: None (occurrence: None)
  Receive Date: 20110129
  Receipt Date: 20100723
  Transmission Date: 20110831
  Serious: No
  Sender: FDA-Public Use
  Company Number: US-PFIZER INC-2010069464

PATIENT
  Sex: Female
  Weight: 52.154 kg

DRUGS (1)
  1. RELPAX [Suspect]
     Indication: MIGRAINE
     Dosage: 40 MG, DAILY
     Route: 048
     Dates: start: 20020101

REACTIONS (2)
  - DRUG INEFFECTIVE [None]
  - INAPPROPRIATE SCHEDULE OF DRUG ADMINISTRATION [None]
